FAERS Safety Report 25787748 (Version 9)
Quarter: 2025Q4

REPORT INFORMATION
  Report Type: Spontaneous
  Country: EU (occurrence: EU)
  Receive Date: 20250910
  Receipt Date: 20251209
  Transmission Date: 20260118
  Serious: Yes (Life-Threatening, Hospitalization, Other)
  Sender: NOVARTIS
  Company Number: EU-002147023-NVSC2025DE118863

PATIENT
  Age: 41 Year
  Sex: Female
  Weight: 80 kg

DRUGS (14)
  1. KISQALI [Suspect]
     Active Substance: RIBOCICLIB SUCCINATE
     Indication: Adjuvant therapy
     Dosage: 400 MG, QD (1-0-0)
     Route: 065
     Dates: start: 20250507, end: 20250519
  2. KISQALI [Suspect]
     Active Substance: RIBOCICLIB SUCCINATE
     Indication: Breast cancer
  3. ANASTROZOLE [Suspect]
     Active Substance: ANASTROZOLE
     Indication: Breast cancer
     Dosage: 1 MG, QD (0-0-1)
     Route: 065
  4. GOSERELIN [Concomitant]
     Active Substance: GOSERELIN
     Indication: Product used for unknown indication
     Dosage: UNK, QW
     Route: 065
  5. GOSERELIN [Concomitant]
     Active Substance: GOSERELIN
     Dosage: UNK, Q4W
     Route: 058
  6. GOSERELIN [Concomitant]
     Active Substance: GOSERELIN
     Dosage: UNK, QW
     Route: 065
  7. GOSERELIN [Concomitant]
     Active Substance: GOSERELIN
     Dosage: UNK, QW
     Route: 058
  8. GOSERELIN [Concomitant]
     Active Substance: GOSERELIN
     Dosage: UNK, QW
     Route: 065
  9. GOSERELIN [Concomitant]
     Active Substance: GOSERELIN
     Dosage: UNK, Q4W
     Route: 058
  10. GOSERELIN [Concomitant]
     Active Substance: GOSERELIN
     Dosage: UNK, QW
     Route: 065
  11. GOSERELIN [Concomitant]
     Active Substance: GOSERELIN
     Dosage: UNK, QW
     Route: 058
  12. LEVOTHYROXINE [Concomitant]
     Active Substance: LEVOTHYROXINE
     Indication: Product used for unknown indication
     Dosage: UNK, QD (1-0-0)
     Route: 065
  13. LEVOTHYROXINE [Concomitant]
     Active Substance: LEVOTHYROXINE
     Dosage: UNK, QD (1-0-0)
     Route: 065
  14. LEVOTHYROXINE [Concomitant]
     Active Substance: LEVOTHYROXINE
     Dosage: UNK, QD (1-0-0)
     Route: 065

REACTIONS (27)
  - Hepatotoxicity [Recovering/Resolving]
  - Liver function test abnormal [Recovering/Resolving]
  - Blood alkaline phosphatase increased [Recovering/Resolving]
  - Gamma-glutamyltransferase increased [Unknown]
  - Aspartate aminotransferase increased [Not Recovered/Not Resolved]
  - Alanine aminotransferase increased [Not Recovered/Not Resolved]
  - Blood bilirubin increased [Not Recovered/Not Resolved]
  - Jaundice [Unknown]
  - Cholestasis [Not Recovered/Not Resolved]
  - Thrombocytopenia [Unknown]
  - Coagulation time prolonged [Unknown]
  - Rash [Unknown]
  - Malaise [Unknown]
  - Myalgia [Unknown]
  - Nausea [Unknown]
  - Mucosal dryness [Unknown]
  - Abdominal discomfort [Unknown]
  - Prothrombin time shortened [Not Recovered/Not Resolved]
  - White blood cell count decreased [Recovered/Resolved]
  - Blood cholesterol increased [Unknown]
  - Amylase increased [Recovered/Resolved]
  - Lipase increased [Unknown]
  - Blood lactate dehydrogenase increased [Recovering/Resolving]
  - C-reactive protein increased [Not Recovered/Not Resolved]
  - Blood thyroid stimulating hormone decreased [Not Recovered/Not Resolved]
  - International normalised ratio abnormal [Not Recovered/Not Resolved]
  - Bilirubin conjugated abnormal [Unknown]

NARRATIVE: CASE EVENT DATE: 20250101
